FAERS Safety Report 6160984-0 (Version None)
Quarter: 2009Q2

REPORT INFORMATION
  Report Type: 
  Country: None (occurrence: None)
  Receive Date: 20090420
  Receipt Date: 20090409
  Transmission Date: 20091009
  Serious: Yes (Other)
  Sender: FDA-Public Use
  Company Number: BE-BAXTER-2009BH003859

PATIENT
  Age: 49 Year
  Sex: Male

DRUGS (9)
  1. EXTRANEAL [Suspect]
     Indication: PERITONEAL DIALYSIS
     Route: 033
     Dates: start: 20080901, end: 20090217
  2. NUTRINEAL [Suspect]
     Indication: PERITONEAL DIALYSIS
     Route: 033
     Dates: start: 20090113, end: 20090217
  3. DIANEAL [Suspect]
     Indication: PERITONEAL DIALYSIS
     Route: 033
     Dates: start: 20061101, end: 20090217
  4. EMCONCOR /BEL/ [Concomitant]
  5. CETRIMIDE [Concomitant]
  6. CHLORHEXIDINE GLUCONATE [Concomitant]
  7. ISOPROPYL ALCOHOL COMPOUND LIQUID [Concomitant]
  8. DISTILLED WATER [Concomitant]
  9. METHYLENE BLUE [Concomitant]

REACTIONS (5)
  - ABDOMINAL PAIN [None]
  - ANOREXIA [None]
  - FATIGUE [None]
  - HYPOTENSION [None]
  - SCLEROSING ENCAPSULATING PERITONITIS [None]
